FAERS Safety Report 5982462-1 (Version None)
Quarter: 2008Q4

REPORT INFORMATION
  Report Type: 
  Country: None (occurrence: None)
  Receive Date: 20081208
  Receipt Date: 20081203
  Transmission Date: 20090506
  Serious: Yes (Other)
  Sender: FDA-Public Use
  Company Number: SE-BRISTOL-MYERS SQUIBB COMPANY-14431035

PATIENT
  Age: 34 Year
  Sex: Female

DRUGS (7)
  1. ORENCIA [Suspect]
     Indication: POLYARTHRITIS
     Dates: start: 20081119
  2. IPREN [Concomitant]
     Dosage: 600MGX3
  3. ACETAMINOPHEN W/ CODEINE [Concomitant]
     Dosage: 1.5 X3.UNITS NOT SPECIFIED
  4. ZOLPIDEM [Concomitant]
  5. OMEPRAZOLE [Concomitant]
  6. CELLCEPT [Concomitant]
     Dosage: 500MG X2 (USED MORE THAN 1 YEAR)
  7. CORTISONE ACETATE TAB [Concomitant]

REACTIONS (1)
  - VISUAL IMPAIRMENT [None]
